FAERS Safety Report 7356373-3 (Version None)
Quarter: 2011Q1

REPORT INFORMATION
  Report Type: 
  Country: None (occurrence: None)
  Receive Date: 20110316
  Receipt Date: 20110309
  Transmission Date: 20110831
  Serious: Yes (Other)
  Sender: FDA-Public Use
  Company Number: JP-PFIZER INC-2011052203

PATIENT
  Sex: Female

DRUGS (1)
  1. MEDROXYPROGESTERONE ACETATE [Suspect]
     Indication: BREAST CANCER METASTATIC
     Dosage: 1200 MG, 1X/DAY
     Dates: start: 20090810

REACTIONS (2)
  - WEIGHT INCREASED [None]
  - CUSHINGOID [None]
